FAERS Safety Report 11294840 (Version 2)
Quarter: 2015Q3

REPORT INFORMATION
  Report Type: Spontaneous
  Country: US (occurrence: US)
  Receive Date: 20150723
  Receipt Date: 20150827
  Transmission Date: 20151125
  Serious: Yes (Other)
  Sender: FDA-Public Use
  Company Number: PHEH2015US000875

PATIENT
  Sex: Female

DRUGS (19)
  1. HYDROCHLOROTHIAZID [Concomitant]
     Active Substance: HYDROCHLOROTHIAZIDE
     Indication: PRODUCT USED FOR UNKNOWN INDICATION
     Dosage: 12.5 MG, QD
     Route: 065
  2. TURMERIC [Concomitant]
     Active Substance: TURMERIC
     Indication: PRODUCT USED FOR UNKNOWN INDICATION
     Route: 065
  3. TEKTURNA [Concomitant]
     Active Substance: ALISKIREN HEMIFUMARATE
     Indication: PRODUCT USED FOR UNKNOWN INDICATION
     Route: 065
  4. ALEVE [Concomitant]
     Active Substance: NAPROXEN SODIUM
     Indication: PRODUCT USED FOR UNKNOWN INDICATION
     Route: 065
  5. VITAMIN E [Concomitant]
     Active Substance: .ALPHA.-TOCOPHEROL
     Indication: PRODUCT USED FOR UNKNOWN INDICATION
     Route: 065
  6. VITAMIN D [Concomitant]
     Active Substance: CHOLECALCIFEROL
     Indication: PRODUCT USED FOR UNKNOWN INDICATION
     Route: 065
  7. AFINITOR [Suspect]
     Active Substance: EVEROLIMUS
     Dosage: 10 MG, QD
     Route: 065
     Dates: end: 20141231
  8. COQUINONE [Concomitant]
     Indication: PRODUCT USED FOR UNKNOWN INDICATION
     Route: 065
  9. TAXOTERE [Suspect]
     Active Substance: DOCETAXEL
     Indication: PRODUCT USED FOR UNKNOWN INDICATION
     Route: 042
  10. COQ10 [Concomitant]
     Active Substance: UBIDECARENONE
     Indication: PRODUCT USED FOR UNKNOWN INDICATION
     Route: 065
  11. GARLIC. [Concomitant]
     Active Substance: GARLIC
     Indication: PRODUCT USED FOR UNKNOWN INDICATION
     Route: 065
  12. AFINITOR [Suspect]
     Active Substance: EVEROLIMUS
     Indication: PRODUCT USED FOR UNKNOWN INDICATION
     Dosage: 10 MG, QD
     Route: 065
     Dates: start: 20141208, end: 20141219
  13. AROMASIN [Suspect]
     Active Substance: EXEMESTANE
     Indication: PRODUCT USED FOR UNKNOWN INDICATION
     Dosage: 25 MG
     Route: 065
  14. TEKTURNA HCT [Concomitant]
     Active Substance: ALISKIREN HEMIFUMARATE\HYDROCHLOROTHIAZIDE
     Indication: PRODUCT USED FOR UNKNOWN INDICATION
     Dosage: 162.5 MG (150 MG ALI + 12.5 MG HCTZ), QD
     Route: 065
  15. MULTI VITAMIN [Concomitant]
     Active Substance: VITAMINS
     Indication: PRODUCT USED FOR UNKNOWN INDICATION
     Route: 065
  16. BIOTIN [Concomitant]
     Active Substance: BIOTIN
     Indication: PRODUCT USED FOR UNKNOWN INDICATION
     Route: 065
  17. HYDROCHLOROTHIAZIDE. [Concomitant]
     Active Substance: HYDROCHLOROTHIAZIDE
     Indication: PRODUCT USED FOR UNKNOWN INDICATION
     Route: 065
  18. LEVOTHYROXINE. [Concomitant]
     Active Substance: LEVOTHYROXINE
     Indication: PRODUCT USED FOR UNKNOWN INDICATION
     Dosage: 75 UG, QD
     Route: 065
  19. VITAMIN D3 [Concomitant]
     Active Substance: CHOLECALCIFEROL
     Indication: PRODUCT USED FOR UNKNOWN INDICATION
     Route: 065

REACTIONS (48)
  - Paraesthesia oral [Unknown]
  - Urine odour abnormal [Unknown]
  - Chromaturia [Unknown]
  - Glomerular filtration rate decreased [Unknown]
  - Pain in jaw [Unknown]
  - Blood potassium decreased [Unknown]
  - Oral discomfort [Unknown]
  - Dizziness [Unknown]
  - Pain in extremity [Unknown]
  - Ageusia [Unknown]
  - Oedema peripheral [Unknown]
  - Headache [Unknown]
  - Epistaxis [Unknown]
  - Vision blurred [Unknown]
  - Malaise [Unknown]
  - Alanine aminotransferase increased [Unknown]
  - Eye swelling [Unknown]
  - Eye pruritus [Unknown]
  - Bite [Unknown]
  - Discomfort [Unknown]
  - Eye discharge [Unknown]
  - Dysgeusia [Unknown]
  - Oral pain [Unknown]
  - Acne [Unknown]
  - Stomatitis [Unknown]
  - Impaired healing [Unknown]
  - Pulmonary fibrosis [Unknown]
  - Blood calcium decreased [Unknown]
  - Wound [Unknown]
  - Ocular hyperaemia [Unknown]
  - Oedema mouth [Unknown]
  - Decreased appetite [Unknown]
  - Pyrexia [Unknown]
  - Weight decreased [Unknown]
  - Wound abscess [Unknown]
  - Arthropathy [Unknown]
  - Paraesthesia [Unknown]
  - Pruritus [Unknown]
  - Dyspnoea [Unknown]
  - Cough [Unknown]
  - Skin disorder [Unknown]
  - Feeling of body temperature change [Unknown]
  - Rhinorrhoea [Unknown]
  - Insomnia [Unknown]
  - Aspartate aminotransferase increased [Unknown]
  - Groin pain [Unknown]
  - Visual impairment [Unknown]
  - Blood glucose increased [Unknown]
